FAERS Safety Report 13703931 (Version 3)
Quarter: 2017Q3

REPORT INFORMATION
  Report Type: Report from Study
  Country: US (occurrence: US)
  Receive Date: 20170629
  Receipt Date: 20170906
  Transmission Date: 20171127
  Serious: Yes (Hospitalization, Other)
  Sender: FDA-Public Use
  Company Number: PHEH2017US019821

PATIENT
  Sex: Male
  Weight: 111.57 kg

DRUGS (2)
  1. NEORAL [Suspect]
     Active Substance: CYCLOSPORINE
     Indication: TRANSPLANT
     Dosage: 6 DF, BID
     Route: 048
     Dates: start: 200405
  2. MYFORTIC [Suspect]
     Active Substance: MYCOPHENOLATE SODIUM
     Indication: TRANSPLANT
     Dosage: 2 DF, BID
     Route: 048
     Dates: start: 200405

REACTIONS (3)
  - Diabetic ulcer [Unknown]
  - Pain in extremity [Unknown]
  - Staphylococcal infection [Unknown]
